FAERS Safety Report 16372387 (Version 2)
Quarter: 2025Q1

REPORT INFORMATION
  Report Type: Spontaneous
  Country: DE (occurrence: DE)
  Receive Date: 20190530
  Receipt Date: 20250105
  Transmission Date: 20250409
  Serious: Yes (Congenital Anomaly, Other)
  Sender: MERCK
  Company Number: DE-009507513-1905DEU011470

PATIENT

DRUGS (1)
  1. ZEPATIER [Suspect]
     Active Substance: ELBASVIR\GRAZOPREVIR
     Route: 064

REACTIONS (3)
  - Trisomy 18 [Unknown]
  - Foetal exposure via father [Unknown]
  - Foetal exposure during pregnancy [Unknown]
